FAERS Safety Report 24835214 (Version 1)
Quarter: 2025Q1

REPORT INFORMATION
  Report Type: Other
  Country: US (occurrence: US)
  Receive Date: 20250113
  Receipt Date: 20250113
  Transmission Date: 20250408
  Serious: Yes (Other)
  Sender: DEXCEL
  Company Number: US-MLMSERVICE-20241226-PI323944-00120-1

PATIENT
  Age: 68 Year
  Sex: Male

DRUGS (1)
  1. DICLOFENAC SODIUM [Suspect]
     Active Substance: DICLOFENAC SODIUM
     Indication: Back pain
     Dosage: FOR MANY YEARS

REACTIONS (2)
  - Intestinal diaphragm disease [Unknown]
  - Small intestinal stenosis [Unknown]
